FAERS Safety Report 6590218-4 (Version None)
Quarter: 2010Q1

REPORT INFORMATION
  Report Type: 
  Country: None (occurrence: None)
  Receive Date: 20100219
  Receipt Date: 20100212
  Transmission Date: 20100710
  Serious: Yes (Hospitalization)
  Sender: FDA-Public Use
  Company Number: DE-ASTRAZENECA-2010SE04446

PATIENT
  Age: 45 Year
  Sex: Female
  Weight: 60 kg

DRUGS (1)
  1. BELOC-ZOK [Suspect]
     Indication: ARRHYTHMIA
     Route: 048
     Dates: start: 20081101, end: 20100101

REACTIONS (4)
  - ASTHMA [None]
  - DYSPNOEA EXERTIONAL [None]
  - INSOMNIA [None]
  - URTICARIA [None]
